FAERS Safety Report 25602908 (Version 1)
Quarter: 2025Q3

REPORT INFORMATION
  Report Type: Report from Study
  Country: IN (occurrence: IN)
  Receive Date: 20250724
  Receipt Date: 20250724
  Transmission Date: 20251021
  Serious: Yes (Death)
  Sender: DAIICHI
  Company Number: IN-AstraZeneca-CH-00914283A

PATIENT
  Sex: Female

DRUGS (1)
  1. ENHERTU [Suspect]
     Active Substance: FAM-TRASTUZUMAB DERUXTECAN-NXKI
     Indication: HER2 positive bladder cancer
     Dosage: 100 MG, ONCE EVERY 3 WK
     Route: 041

REACTIONS (3)
  - Fall [Fatal]
  - Blood glucose increased [Fatal]
  - Paralysis [Fatal]
